FAERS Safety Report 6294349-8 (Version None)
Quarter: 2009Q3

REPORT INFORMATION
  Report Type: 
  Country: None (occurrence: None)
  Receive Date: 20090803
  Receipt Date: 20090702
  Transmission Date: 20100115
  Serious: Yes (Other)
  Sender: FDA-Public Use
  Company Number: JP-PFIZER INC-2009247543

PATIENT

DRUGS (1)
  1. CELECOX [Suspect]
     Dosage: 200 MG, UNK/D
     Route: 048
     Dates: end: 20090702

REACTIONS (1)
  - HALLUCINATION [None]
